FAERS Safety Report 14935227 (Version 1)
Quarter: 2018Q2

REPORT INFORMATION
  Report Type: Spontaneous
  Country: US (occurrence: US)
  Receive Date: 20180524
  Receipt Date: 20180524
  Transmission Date: 20180711
  Serious: No
  Sender: FDA-Public Use
  Company Number: US-ASTRAZENECA-2018SE66932

PATIENT
  Sex: Female
  Weight: 90.7 kg

DRUGS (17)
  1. SEROQUEL XR [Suspect]
     Active Substance: QUETIAPINE FUMARATE
     Indication: DEPRESSION
     Route: 048
     Dates: start: 2017, end: 201804
  2. ALBUTEROL ER [Concomitant]
     Indication: ASTHMA
     Route: 048
     Dates: start: 1998
  3. BENEFIBER [Concomitant]
     Active Substance: STARCH, WHEAT
     Indication: SUPPLEMENTATION THERAPY
     Dosage: 2TBSP DAILY
     Route: 048
  4. DICYCLOMINE [Concomitant]
     Active Substance: DICYCLOMINE HYDROCHLORIDE
     Indication: SEIZURE
     Route: 048
     Dates: start: 201804, end: 201804
  5. ALPRAZOLAM. [Concomitant]
     Active Substance: ALPRAZOLAM
     Indication: STRESS
     Route: 048
     Dates: start: 1998
  6. MSM 1000MG BID [Concomitant]
     Indication: IMMUNE SYSTEM DISORDER
     Route: 048
  7. VITAMIN D3 [Concomitant]
     Active Substance: CHOLECALCIFEROL
     Indication: PROPHYLAXIS
     Route: 048
  8. PROBIOTIC 10 [Concomitant]
     Indication: SUPPLEMENTATION THERAPY
     Route: 048
  9. POTASSIUM [Concomitant]
     Active Substance: POTASSIUM
     Indication: HYPERHIDROSIS
     Route: 048
     Dates: start: 1970
  10. VITAMIN B 12 COMPLEX [Concomitant]
     Indication: ASTHENIA
     Route: 048
  11. ALPURINOL [Concomitant]
     Indication: GOUT
     Route: 048
     Dates: start: 1998
  12. ALPURINOL [Concomitant]
     Indication: RENAL DISORDER
     Route: 048
     Dates: start: 1998
  13. ZONISAMIDE. [Concomitant]
     Active Substance: ZONISAMIDE
     Indication: NEUROPATHY PERIPHERAL
     Route: 048
  14. AREDS [Concomitant]
     Active Substance: MINERALS\VITAMINS
     Indication: EYE DISORDER
     Dates: start: 1970
  15. THYROID [Concomitant]
     Active Substance: LEVOTHYROXINE\LIOTHYRONINE
     Indication: HYPOTHYROIDISM
     Route: 048
     Dates: start: 1998
  16. MONTELUKAST SODIUM. [Concomitant]
     Active Substance: MONTELUKAST SODIUM
     Indication: HYPERSENSITIVITY
     Route: 048
     Dates: start: 2015
  17. VITAMIN B 12 COMPLEX [Concomitant]
     Indication: SUPPLEMENTATION THERAPY
     Route: 048

REACTIONS (34)
  - Gait disturbance [Recovered/Resolved]
  - Vision blurred [Recovered/Resolved]
  - Haemorrhage [Recovered/Resolved]
  - Periarthritis [Recovered/Resolved]
  - Dizziness postural [Recovered/Resolved]
  - Drooling [Recovered/Resolved]
  - Effusion [Recovered/Resolved]
  - Tri-iodothyronine abnormal [Recovered/Resolved]
  - Aortic arteriosclerosis [Unknown]
  - Hypersomnia [Recovered/Resolved]
  - Constipation [Recovered/Resolved]
  - Blood pressure increased [Recovered/Resolved]
  - Hyperchlorhydria [Recovered/Resolved]
  - Dysarthria [Recovered/Resolved]
  - Balance disorder [Recovered/Resolved]
  - Wheezing [Recovered/Resolved]
  - Contusion [Recovered/Resolved]
  - Atrial fibrillation [Unknown]
  - Swelling [Recovered/Resolved]
  - Confusional state [Recovered/Resolved]
  - Tremor [Recovered/Resolved]
  - Asthenia [Recovered/Resolved]
  - Drug hypersensitivity [Not Recovered/Not Resolved]
  - Asthma [Recovered/Resolved]
  - Swelling face [Unknown]
  - Increased appetite [Recovered/Resolved]
  - Sneezing [Recovered/Resolved]
  - Dry skin [Recovered/Resolved]
  - Weight increased [Not Recovered/Not Resolved]
  - Visual impairment [Recovered/Resolved]
  - Malaise [Recovered/Resolved]
  - Arthralgia [Recovered/Resolved]
  - Heart rate irregular [Unknown]
  - Fatigue [Recovered/Resolved]
